FAERS Safety Report 6498891-6 (Version None)
Quarter: 2009Q4

REPORT INFORMATION
  Report Type: 
  Country: None (occurrence: None)
  Receive Date: 20091127
  Receipt Date: 20081030
  Transmission Date: 20100525
  Serious: No
  Sender: FDA-Public Use
  Company Number: 280831

PATIENT
  Age: 46 Year
  Sex: Male

DRUGS (4)
  1. NOVOLOG [Suspect]
     Indication: TYPE 1 DIABETES MELLITUS
     Dosage: SLIDING SCALE, BID, SUBCUTANEOUS
     Route: 058
     Dates: start: 20060101
  2. NOVOLOG [Suspect]
  3. NOVOLOG MIX 70/30 [Concomitant]
  4. LANTUS [Concomitant]

REACTIONS (2)
  - BLOOD GLUCOSE INCREASED [None]
  - DYSGEUSIA [None]
